FAERS Safety Report 11464558 (Version 3)
Quarter: 2015Q3

REPORT INFORMATION
  Report Type: Spontaneous
  Country: US (occurrence: US)
  Receive Date: 20150831
  Receipt Date: 20150903
  Transmission Date: 20151125
  Serious: No
  Sender: FDA-Public Use
  Company Number: US-ELI_LILLY_AND_COMPANY-US201004002761

PATIENT
  Age: 65 Year
  Sex: Female

DRUGS (18)
  1. CYMBALTA [Suspect]
     Active Substance: DULOXETINE HYDROCHLORIDE
     Dosage: 60 MG, EACH MORNING
  2. CYMBALTA [Suspect]
     Active Substance: DULOXETINE HYDROCHLORIDE
     Dosage: 60 MG, EACH MORNING
     Dates: start: 201202
  3. NORVASC [Concomitant]
     Active Substance: AMLODIPINE BESYLATE
  4. ASPIRIN                                 /USA/ [Concomitant]
  5. CALCIUM [Concomitant]
     Active Substance: CALCIUM
  6. CYMBALTA [Suspect]
     Active Substance: DULOXETINE HYDROCHLORIDE
     Dosage: 30 MG, 2/D
     Route: 048
  7. CYMBALTA [Suspect]
     Active Substance: DULOXETINE HYDROCHLORIDE
     Dosage: 60 MG, 2/D
     Route: 048
     Dates: start: 20100318, end: 20100321
  8. CYMBALTA [Suspect]
     Active Substance: DULOXETINE HYDROCHLORIDE
     Indication: BACK PAIN
     Dosage: 30 MG, DAILY (1/D)
     Route: 048
     Dates: start: 2008
  9. LOPRESSOR [Concomitant]
     Active Substance: METOPROLOL TARTRATE
  10. CYMBALTA [Suspect]
     Active Substance: DULOXETINE HYDROCHLORIDE
     Dosage: 30 MG, BID
  11. SYNTHROID [Concomitant]
     Active Substance: LEVOTHYROXINE SODIUM
  12. SIMVASTATIN. [Concomitant]
     Active Substance: SIMVASTATIN
  13. CYMBALTA [Suspect]
     Active Substance: DULOXETINE HYDROCHLORIDE
     Dosage: 30 MG, EACH EVENING
     Dates: start: 201202
  14. HYDROCHLOROTHIAZIDE. [Concomitant]
     Active Substance: HYDROCHLOROTHIAZIDE
  15. CYMBALTA [Suspect]
     Active Substance: DULOXETINE HYDROCHLORIDE
     Dosage: 30 MG, QD
  16. VITAMIN E                            /001105/ [Concomitant]
  17. CYMBALTA [Suspect]
     Active Substance: DULOXETINE HYDROCHLORIDE
     Dosage: 30 MG, 4/D
     Route: 048
     Dates: end: 201003
  18. CYMBALTA [Suspect]
     Active Substance: DULOXETINE HYDROCHLORIDE
     Dosage: 30 MG, EACH EVENING

REACTIONS (16)
  - Hot flush [Unknown]
  - Restless legs syndrome [Not Recovered/Not Resolved]
  - Visual acuity reduced [Unknown]
  - Rash [Unknown]
  - Pruritus [Not Recovered/Not Resolved]
  - Off label use [Recovered/Resolved]
  - Insomnia [Not Recovered/Not Resolved]
  - Muscle spasms [Not Recovered/Not Resolved]
  - Hyperhidrosis [Not Recovered/Not Resolved]
  - Palpitations [Unknown]
  - Cataract operation [Recovered/Resolved]
  - Headache [Not Recovered/Not Resolved]
  - Feeling abnormal [Unknown]
  - Feeling cold [Not Recovered/Not Resolved]
  - Dry mouth [Not Recovered/Not Resolved]
  - Drug withdrawal syndrome [Unknown]

NARRATIVE: CASE EVENT DATE: 2008
